FAERS Safety Report 4951760-2 (Version None)
Quarter: 2006Q1

REPORT INFORMATION
  Report Type: 
  Country: None (occurrence: None)
  Receive Date: 20060323
  Receipt Date: 20060320
  Transmission Date: 20060701
  Serious: Yes (Hospitalization)
  Sender: FDA-Public Use
  Company Number: DE-GLAXOSMITHKLINE-D0049120A

PATIENT
  Age: 75 Year
  Sex: Female

DRUGS (1)
  1. QUILONUM RETARD [Suspect]
     Dosage: 1125MG PER DAY
     Route: 048
     Dates: start: 20051107, end: 20051129

REACTIONS (3)
  - ANOREXIA [None]
  - LIPASE INCREASED [None]
  - NAUSEA [None]
